FAERS Safety Report 5514358-3 (Version None)
Quarter: 2007Q4

REPORT INFORMATION
  Report Type: 
  Country: None (occurrence: None)
  Receive Date: 20071113
  Receipt Date: 20070423
  Transmission Date: 20080405
  Serious: No
  Sender: FDA-Public Use
  Company Number: A0648376A

PATIENT

DRUGS (2)
  1. COREG [Suspect]
     Indication: DRUG USE FOR UNKNOWN INDICATION
     Dosage: 25MG TWICE PER DAY
     Route: 048
  2. PREDNISONE TAB [Concomitant]

REACTIONS (2)
  - EYE OEDEMA [None]
  - LOCAL SWELLING [None]
